FAERS Safety Report 12242586 (Version 2)
Quarter: 2016Q2

REPORT INFORMATION
  Report Type: Spontaneous
  Country: US (occurrence: US)
  Receive Date: 20160406
  Receipt Date: 20160610
  Transmission Date: 20160815
  Serious: Yes (Hospitalization)
  Sender: FDA-Public Use
  Company Number: US-BEH-2016060677

PATIENT
  Sex: Female
  Weight: 63.6 kg

DRUGS (21)
  1. BERINERT [Suspect]
     Active Substance: HUMAN C1-ESTERASE INHIBITOR
     Indication: HEREDITARY ANGIOEDEMA
  2. EPIPEN [Concomitant]
     Active Substance: EPINEPHRINE
  3. BERINERT [Suspect]
     Active Substance: HUMAN C1-ESTERASE INHIBITOR
     Indication: IMMUNODEFICIENCY COMMON VARIABLE
     Dosage: 500 UNIT VIALS
     Route: 042
  4. BERINERT [Suspect]
     Active Substance: HUMAN C1-ESTERASE INHIBITOR
     Indication: HEREDITARY ANGIOEDEMA
  5. HYDROMORPHONE [Concomitant]
     Active Substance: HYDROMORPHONE
  6. CITALOPRAM [Concomitant]
     Active Substance: CITALOPRAM HYDROBROMIDE
  7. CREON [Concomitant]
     Active Substance: PANCRELIPASE AMYLASE\PANCRELIPASE LIPASE\PANCRELIPASE PROTEASE
  8. DIPHENHYDRAMINE. [Concomitant]
     Active Substance: DIPHENHYDRAMINE
  9. SODIUM CHLORIDE. [Concomitant]
     Active Substance: SODIUM CHLORIDE
  10. DILANTIN [Concomitant]
     Active Substance: PHENYTOIN
  11. CINRYZE [Concomitant]
     Active Substance: HUMAN C1-ESTERASE INHIBITOR
  12. FISH OIL [Concomitant]
     Active Substance: FISH OIL
  13. MILG OF MAGNESIA [Concomitant]
  14. MULTIVITAMINS [Concomitant]
     Active Substance: VITAMINS
  15. METHSCOPOLAMINE BROMIDE. [Concomitant]
     Active Substance: METHSCOPOLAMINE BROMIDE
  16. HEPARIN [Concomitant]
     Active Substance: HEPARIN SODIUM
  17. CEFDINIR. [Concomitant]
     Active Substance: CEFDINIR
  18. VITAMIN D [Concomitant]
     Active Substance: CHOLECALCIFEROL
  19. VITAMIN C [Concomitant]
     Active Substance: ASCORBIC ACID
  20. SYNTHROID [Concomitant]
     Active Substance: LEVOTHYROXINE SODIUM
  21. LINZESS [Concomitant]
     Active Substance: LINACLOTIDE

REACTIONS (3)
  - Sinusitis [Unknown]
  - Hypotension [Unknown]
  - Product use issue [None]
